FAERS Safety Report 8816700 (Version 1)
Quarter: 2012Q4

REPORT INFORMATION
  Report Type: Spontaneous
  Country: US (occurrence: None)
  Receive Date: 20120928
  Receipt Date: 20120928
  Transmission Date: 20130627
  Serious: Yes (Hospitalization)
  Sender: FDA-Public Use
  Company Number: 139488

PATIENT
  Age: 72 Year
  Sex: Male

DRUGS (1)
  1. DOBUTAMINE [Suspect]
     Indication: STRESS ECHOCARDIOGRAPHY
     Dosage: 10ug/kg/min + increased 10ug/kg/min at 3ml

REACTIONS (4)
  - Hypertension [None]
  - Haemorrhage intracranial [None]
  - Subarachnoid haemorrhage [None]
  - International normalised ratio increased [None]
